FAERS Safety Report 18564181 (Version 1)
Quarter: 2020Q4

REPORT INFORMATION
  Report Type: Spontaneous
  Country: US (occurrence: US)
  Receive Date: 20201129
  Receipt Date: 20201129
  Transmission Date: 20210114
  Serious: Yes (Hospitalization)
  Sender: FDA-Public Use
  Company Number: None

PATIENT
  Age: 17 Year
  Sex: Female
  Weight: 110.68 kg

DRUGS (8)
  1. KEPPRA [Concomitant]
     Active Substance: LEVETIRACETAM
  2. CARNITOR [Concomitant]
     Active Substance: LEVOCARNITINE
  3. ATIVAN [Concomitant]
     Active Substance: LORAZEPAM
  4. EPIDIOLEX [Suspect]
     Active Substance: CANNABIDIOL
     Indication: EPILEPSY
     Dosage: ?          QUANTITY:6 ML MILLILITRE(S);?
     Route: 048
     Dates: start: 20200615, end: 20201127
  5. ELIQUIS [Concomitant]
     Active Substance: APIXABAN
  6. CLOBAZAM. [Concomitant]
     Active Substance: CLOBAZAM
  7. CALCIUM CARB [Concomitant]
     Active Substance: CALCIUM CARBONATE
  8. ZONISAMIDE. [Concomitant]
     Active Substance: ZONISAMIDE

REACTIONS (2)
  - Seizure [None]
  - Drug ineffective [None]

NARRATIVE: CASE EVENT DATE: 20201127
